FAERS Safety Report 4392233-8 (Version None)
Quarter: 2004Q3

REPORT INFORMATION
  Report Type: 
  Country: None (occurrence: None)
  Receive Date: 20040702
  Receipt Date: 20040623
  Transmission Date: 20050211
  Serious: Yes (Other)
  Sender: FDA-Public Use
  Company Number: 2004042426

PATIENT
  Age: 90 Year
  Sex: Female
  Weight: 57.1532 kg

DRUGS (1)
  1. TIKOSYN [Suspect]
     Indication: ARRHYTHMIA
     Dosage: 250 MCG (125 MCG, 2 IN 1 D), ORAL
     Route: 048
     Dates: start: 20040616

REACTIONS (5)
  - CARCINOMA [None]
  - ENURESIS [None]
  - NOCTURIA [None]
  - POLLAKIURIA [None]
  - URINARY HESITATION [None]
